FAERS Safety Report 8837104 (Version 1)
Quarter: 2012Q4

REPORT INFORMATION
  Report Type: 
  Country: US (occurrence: US)
  Receive Date: 20121011
  Receipt Date: 20121011
  Transmission Date: 20130627
  Serious: No
  Sender: FDA-Public Use
  Company Number: US-TEVA-363663USA

PATIENT
  Age: 70 Year
  Sex: Male
  Weight: 86.26 kg

DRUGS (4)
  1. NUVIGIL [Suspect]
     Indication: SLEEP APNOEA SYNDROME
     Dosage: 250 Milligram Daily;
     Route: 048
     Dates: start: 201205
  2. NIFEDIPINE [Concomitant]
     Indication: HYPERTENSION
     Route: 048
  3. TAMSULOSIN [Concomitant]
     Indication: RENAL DISORDER
     Route: 048
  4. LOSARTAN [Concomitant]
     Indication: BLOOD CHOLESTEROL
     Route: 048

REACTIONS (1)
  - Drug effect decreased [Not Recovered/Not Resolved]
